FAERS Safety Report 9903738 (Version 1)
Quarter: 2014Q1

REPORT INFORMATION
  Report Type: Spontaneous
  Country: US (occurrence: US)
  Receive Date: 20140218
  Receipt Date: 20140218
  Transmission Date: 20141002
  Serious: No
  Sender: FDA-Public Use
  Company Number: US-009507513-1402USA006176

PATIENT
  Sex: Female

DRUGS (4)
  1. DESLORATADINE [Suspect]
     Indication: HYPERSENSITIVITY
     Dosage: UNK
     Route: 048
     Dates: start: 2013
  2. ZOCOR [Concomitant]
  3. SINGULAIR [Concomitant]
  4. NEXIUM [Concomitant]

REACTIONS (4)
  - Oropharyngeal pain [Recovered/Resolved]
  - Rhinorrhoea [Recovered/Resolved]
  - Upper respiratory tract infection [Recovered/Resolved]
  - Drug ineffective [Recovered/Resolved]
